FAERS Safety Report 6113718-X (Version None)
Quarter: 2009Q1

REPORT INFORMATION
  Report Type: 
  Country: None (occurrence: None)
  Receive Date: 20090312
  Receipt Date: 20090306
  Transmission Date: 20090719
  Serious: Yes (Hospitalization)
  Sender: FDA-Public Use
  Company Number: CA-ELI_LILLY_AND_COMPANY-CA200903002027

PATIENT
  Sex: Female

DRUGS (6)
  1. FORTEO [Suspect]
     Indication: OSTEOPOROSIS
     Dosage: 20 UG, DAILY (1/D)
     Route: 058
     Dates: start: 20090129, end: 20090224
  2. FORTEO [Suspect]
     Dosage: 20 UG, DAILY (1/D)
     Route: 058
     Dates: start: 20090303
  3. PREDNISONE [Concomitant]
     Indication: DYSPNOEA
     Dosage: UNK, AS NEEDED
  4. SYMBICORT [Concomitant]
  5. CALCIUM [Concomitant]
  6. VITAMIN D [Concomitant]

REACTIONS (4)
  - ASTHMA [None]
  - DYSPNOEA [None]
  - INFLUENZA [None]
  - NAUSEA [None]
